FAERS Safety Report 19630817 (Version 1)
Quarter: 2021Q3

REPORT INFORMATION
  Report Type: Report from Study
  Country: US (occurrence: US)
  Receive Date: 20210729
  Receipt Date: 20210729
  Transmission Date: 20211014
  Serious: Yes (Hospitalization, Other)
  Sender: FDA-Public Use
  Company Number: US-TAKEDA-US201619410

PATIENT
  Age: 37 Year
  Sex: Female
  Weight: 74.83 kg

DRUGS (16)
  1. TEDUGLUTIDE [Suspect]
     Active Substance: TEDUGLUTIDE
     Dosage: 3.6 MG, 4 DOSES PER WEEK
     Route: 058
     Dates: start: 20140708, end: 20140729
  2. TEDUGLUTIDE [Suspect]
     Active Substance: TEDUGLUTIDE
     Dosage: 3.6 MG, 4 DOSES PER WEEK
     Route: 058
     Dates: start: 20140708, end: 20140729
  3. TEDUGLUTIDE [Suspect]
     Active Substance: TEDUGLUTIDE
     Dosage: 3.45 MG, 1X/DAY:QD
     Route: 058
     Dates: start: 201605, end: 20160721
  4. TEDUGLUTIDE [Suspect]
     Active Substance: TEDUGLUTIDE
     Dosage: 3.45 MG, 1X/DAY:QD
     Route: 058
     Dates: start: 201605, end: 20160721
  5. TEDUGLUTIDE [Suspect]
     Active Substance: TEDUGLUTIDE
     Dosage: 3.6 MG, 4 DOSES PER WEEK
     Route: 058
     Dates: start: 20140708, end: 20140729
  6. TEDUGLUTIDE [Suspect]
     Active Substance: TEDUGLUTIDE
     Dosage: 3.45 MG, 4 TIMES PER WEEK
     Route: 058
     Dates: start: 201608, end: 201608
  7. TEDUGLUTIDE [Suspect]
     Active Substance: TEDUGLUTIDE
     Indication: SHORT-BOWEL SYNDROME
     Dosage: 3.6 MG, 1X/DAY:QD
     Route: 058
     Dates: start: 20140401, end: 20140708
  8. TEDUGLUTIDE [Suspect]
     Active Substance: TEDUGLUTIDE
     Dosage: 3.45 MG, 1X/DAY:QD
     Route: 058
     Dates: start: 201605, end: 20160721
  9. TEDUGLUTIDE [Suspect]
     Active Substance: TEDUGLUTIDE
     Dosage: 3.45 MG, 4 TIMES PER WEEK
     Route: 058
     Dates: start: 201608, end: 201608
  10. TEDUGLUTIDE [Suspect]
     Active Substance: TEDUGLUTIDE
     Dosage: 3.45 MG, 4 TIMES PER WEEK
     Route: 058
     Dates: start: 201608, end: 201608
  11. TEDUGLUTIDE [Suspect]
     Active Substance: TEDUGLUTIDE
     Indication: SHORT-BOWEL SYNDROME
     Dosage: 3.6 MG, 1X/DAY:QD
     Route: 058
     Dates: start: 20140401, end: 20140708
  12. TEDUGLUTIDE [Suspect]
     Active Substance: TEDUGLUTIDE
     Indication: SHORT-BOWEL SYNDROME
     Dosage: 3.6 MG, 1X/DAY:QD
     Route: 058
     Dates: start: 20140401, end: 20140708
  13. TEDUGLUTIDE [Suspect]
     Active Substance: TEDUGLUTIDE
     Indication: SHORT-BOWEL SYNDROME
     Dosage: 3.6 MG, 1X/DAY:QD
     Route: 058
     Dates: start: 20140401, end: 20140708
  14. TEDUGLUTIDE [Suspect]
     Active Substance: TEDUGLUTIDE
     Dosage: 3.45 MG, 4 TIMES PER WEEK
     Route: 058
     Dates: start: 201608, end: 201608
  15. TEDUGLUTIDE [Suspect]
     Active Substance: TEDUGLUTIDE
     Dosage: 3.6 MG, 4 DOSES PER WEEK
     Route: 058
     Dates: start: 20140708, end: 20140729
  16. TEDUGLUTIDE [Suspect]
     Active Substance: TEDUGLUTIDE
     Dosage: 3.45 MG, 1X/DAY:QD
     Route: 058
     Dates: start: 201605, end: 20160721

REACTIONS (5)
  - Crohn^s disease [Recovered/Resolved]
  - Pancreatitis [Recovered/Resolved]
  - Cholecystitis [Recovered/Resolved]
  - Ileus [Recovered/Resolved]
  - Gastrointestinal stoma output increased [Recovered/Resolved]

NARRATIVE: CASE EVENT DATE: 20150812
